FAERS Safety Report 10867235 (Version 2)
Quarter: 2015Q1

REPORT INFORMATION
  Report Type: Report from Study
  Country: US (occurrence: US)
  Receive Date: 20150225
  Receipt Date: 20150302
  Transmission Date: 20150721
  Serious: Yes (Death)
  Sender: FDA-Public Use
  Company Number: US-ABBVIE-15K-163-1350271-00

PATIENT
  Age: 52 Year
  Sex: Male
  Weight: 63.56 kg

DRUGS (4)
  1. VICODIN HP [Suspect]
     Active Substance: ACETAMINOPHEN\HYDROCODONE BITARTRATE
     Indication: BACK PAIN
     Route: 065
     Dates: end: 20140228
  2. MORPHINE [Suspect]
     Active Substance: MORPHINE
     Indication: BACK PAIN
     Route: 065
     Dates: start: 2010, end: 20140228
  3. HUMIRA [Suspect]
     Active Substance: ADALIMUMAB
     Indication: PSORIASIS
     Route: 065
     Dates: start: 201105, end: 201305
  4. HUMIRA [Suspect]
     Active Substance: ADALIMUMAB
     Indication: PSORIATIC ARTHROPATHY

REACTIONS (12)
  - Accidental overdose [Fatal]
  - Gastrointestinal disorder [Fatal]
  - Hepatic enzyme increased [Recovered/Resolved]
  - Back pain [Fatal]
  - Vomiting [Fatal]
  - Hypotension [Fatal]
  - Blood testosterone decreased [Recovered/Resolved]
  - Malaise [Recovered/Resolved]
  - Viral infection [Fatal]
  - Fatigue [Recovered/Resolved]
  - Viral infection [Recovered/Resolved]
  - Diarrhoea [Fatal]

NARRATIVE: CASE EVENT DATE: 201305
